FAERS Safety Report 17308246 (Version 2)
Quarter: 2020Q2

REPORT INFORMATION
  Report Type: Spontaneous
  Country: FR (occurrence: FR)
  Receive Date: 20200123
  Receipt Date: 20200630
  Transmission Date: 20200713
  Serious: Yes (Other)
  Sender: FDA-Public Use
  Company Number: FR-MYLANLABS-2020M1006821

PATIENT
  Age: 21 Year
  Sex: Male

DRUGS (15)
  1. POSACONAZOLE [Suspect]
     Active Substance: POSACONAZOLE
     Indication: CHRONIC GRANULOMATOUS DISEASE
     Dosage: UNK
  2. CASPOFUNGIN [Suspect]
     Active Substance: CASPOFUNGIN
     Indication: CEREBRAL ASPERGILLOSIS
     Dosage: UNK
  3. CASPOFUNGIN [Suspect]
     Active Substance: CASPOFUNGIN
     Indication: CHRONIC GRANULOMATOUS DISEASE
     Dosage: UNK
  4. VORICONAZOLE. [Suspect]
     Active Substance: VORICONAZOLE
     Indication: CEREBRAL ASPERGILLOSIS
     Dosage: UNK
  5. VORICONAZOLE. [Suspect]
     Active Substance: VORICONAZOLE
     Indication: CHRONIC GRANULOMATOUS DISEASE
     Dosage: UNK
  6. INTERFERON GAMMA NOS [Suspect]
     Active Substance: INTERFERON GAMMA
     Indication: CEREBRAL ASPERGILLOSIS
     Dosage: UNK
     Route: 065
  7. POSACONAZOLE [Suspect]
     Active Substance: POSACONAZOLE
     Indication: BRONCHOPULMONARY ASPERGILLOSIS
     Dosage: UNK
     Route: 065
  8. CASPOFUNGIN [Suspect]
     Active Substance: CASPOFUNGIN
     Indication: BRONCHOPULMONARY ASPERGILLOSIS
     Dosage: UNK
     Route: 065
  9. INTERFERON GAMMA NOS [Suspect]
     Active Substance: INTERFERON GAMMA
     Indication: BRONCHOPULMONARY ASPERGILLOSIS
     Dosage: UNK
  10. AMPHOTERICIN-B [Suspect]
     Active Substance: AMPHOTERICIN B
     Indication: CEREBRAL ASPERGILLOSIS
     Dosage: UNK
  11. POSACONAZOLE [Suspect]
     Active Substance: POSACONAZOLE
     Indication: CEREBRAL ASPERGILLOSIS
     Dosage: UNK
  12. INTERFERON GAMMA NOS [Suspect]
     Active Substance: INTERFERON GAMMA
     Indication: CHRONIC GRANULOMATOUS DISEASE
     Dosage: UNK
  13. AMPHOTERICIN-B [Suspect]
     Active Substance: AMPHOTERICIN B
     Indication: BRONCHOPULMONARY ASPERGILLOSIS
     Dosage: UNK
  14. AMPHOTERICIN-B [Suspect]
     Active Substance: AMPHOTERICIN B
     Indication: CHRONIC GRANULOMATOUS DISEASE
     Dosage: UNK
  15. VORICONAZOLE. [Suspect]
     Active Substance: VORICONAZOLE
     Indication: BRONCHOPULMONARY ASPERGILLOSIS
     Dosage: UNK
     Route: 065

REACTIONS (2)
  - Therapy non-responder [Recovered/Resolved]
  - Photosensitivity reaction [Unknown]
